FAERS Safety Report 5747477-7 (Version None)
Quarter: 2008Q2

REPORT INFORMATION
  Report Type: 
  Country: None (occurrence: None)
  Receive Date: 20080523
  Receipt Date: 20080508
  Transmission Date: 20081010
  Serious: Yes (Hospitalization, Other)
  Sender: FDA-Public Use
  Company Number: JP-ELI_LILLY_AND_COMPANY-JP200802002588

PATIENT
  Sex: Male

DRUGS (10)
  1. GEMZAR [Suspect]
     Indication: GALLBLADDER CANCER
     Dosage: 800 MG, OTHER
     Route: 042
     Dates: start: 20070807
  2. GEMZAR [Suspect]
     Dosage: 600 MG, OTHER
     Route: 042
     Dates: start: 20070911, end: 20071211
  3. LANDEL [Concomitant]
     Dosage: 20 MG, DAILY (1/D)
     Route: 048
     Dates: start: 20070518, end: 20080125
  4. MEVALOTIN /JPN/ [Concomitant]
     Dosage: 20 MG, DAILY (1/D)
     Route: 048
     Dates: start: 20070518, end: 20080203
  5. DIOVAN [Concomitant]
     Dosage: 40 MG, DAILY (1/D)
     Route: 048
     Dates: start: 20070518, end: 20080203
  6. URSO 250 [Concomitant]
     Dosage: 100 MG, 3/D
     Route: 048
     Dates: start: 20070709, end: 20080125
  7. BIO THREE [Concomitant]
     Dosage: 1 D/F, 3/D
     Route: 048
     Dates: start: 20070709, end: 20080130
  8. GASMOTIN [Concomitant]
     Dosage: 5 MG, 3/D
     Route: 048
     Dates: start: 20070710, end: 20080125
  9. PERSANTINE [Concomitant]
     Dosage: 100 MG, 3/D
     Route: 048
     Dates: start: 20070727, end: 20080203
  10. MAGMITT [Concomitant]
     Dosage: 500 MG, 3/D
     Route: 048
     Dates: start: 20070925, end: 20080125

REACTIONS (4)
  - BONE MARROW FAILURE [None]
  - GASTROENTERITIS VIRAL [None]
  - HYPOALBUMINAEMIA [None]
  - MALABSORPTION [None]
